FAERS Safety Report 20192816 (Version 4)
Quarter: 2023Q2

REPORT INFORMATION
  Report Type: Report from Study
  Country: KR (occurrence: KR)
  Receive Date: 20211216
  Receipt Date: 20230427
  Transmission Date: 20230722
  Serious: Yes (Death, Hospitalization, Other)
  Sender: FDA-Public Use
  Company Number: KR-GLAXOSMITHKLINE-KR2021GSK254075

PATIENT

DRUGS (6)
  1. FLUTICASONE FUROATE\UMECLIDINIUM BROMIDE\VILANTEROL TRIFENATATE [Suspect]
     Active Substance: FLUTICASONE FUROATE\UMECLIDINIUM BROMIDE\VILANTEROL TRIFENATATE
     Indication: Chronic obstructive pulmonary disease
     Dosage: QD
     Route: 055
     Dates: start: 20211014, end: 20211123
  2. DOXOFYLLINE [Concomitant]
     Active Substance: DOXOFYLLINE
     Indication: Chronic obstructive pulmonary disease
     Dosage: SINGAL DOSE 1, BID
     Route: 048
     Dates: start: 20181015, end: 20211123
  3. CARDURA XL [Concomitant]
     Active Substance: DOXAZOSIN MESYLATE
     Indication: Hypertension
     Dosage: DOSE 1, QD
     Route: 048
     Dates: start: 20190627, end: 20211123
  4. NORVASC [Concomitant]
     Active Substance: AMLODIPINE BESYLATE
     Indication: Hypertension
     Dosage: DOSE 1, QD
     Route: 048
     Dates: start: 20180716, end: 20211123
  5. CALCIUM POLYSTYRENE SULFONATE [Concomitant]
     Active Substance: CALCIUM POLYSTYRENE SULFONATE
     Indication: Chronic kidney disease
     Dosage: DOSE 1, QD
     Route: 048
     Dates: start: 20180416, end: 20211123
  6. FEROBA U SR [Concomitant]
     Indication: Chronic kidney disease
     Dosage: DOSE 1, QD
     Route: 048
     Dates: start: 20180416, end: 20211123

REACTIONS (1)
  - Pneumonia [Fatal]

NARRATIVE: CASE EVENT DATE: 20211124
